FAERS Safety Report 16076486 (Version 1)
Quarter: 2019Q1

REPORT INFORMATION
  Report Type: Spontaneous
  Country: US (occurrence: US)
  Receive Date: 20190315
  Receipt Date: 20190315
  Transmission Date: 20190418
  Serious: No
  Sender: FDA-Public Use
  Company Number: US-PFIZER INC-2019108843

PATIENT
  Age: 72 Year
  Sex: Male

DRUGS (5)
  1. PROMETHAZINE W/CODEINE [Concomitant]
     Active Substance: CODEINE\PROMETHAZINE
     Indication: COUGH
     Dosage: UNK, 1X/DAY (1-2 TEASPOONS BY MOUTH AT BED)
     Route: 048
  2. XELJANZ [Suspect]
     Active Substance: TOFACITINIB CITRATE
     Indication: RHEUMATOID ARTHRITIS
     Dosage: 5 MG, 2X/DAY (ONE IN THE MORNING AND ONE IN AFTERNOON)
     Route: 048
     Dates: start: 201803
  3. NAPROXEN SODIUM. [Concomitant]
     Active Substance: NAPROXEN SODIUM
     Indication: PAIN
     Dosage: 220 MG, AS NEEDED
  4. PIRFENIDONE. [Concomitant]
     Active Substance: PIRFENIDONE
     Indication: IDIOPATHIC PULMONARY FIBROSIS
     Dosage: 1800 MG, DAILY
     Route: 048
  5. BREO ELLIPTA [Concomitant]
     Active Substance: FLUTICASONE FUROATE\VILANTEROL TRIFENATATE
     Indication: PULMONARY FIBROSIS
     Dosage: 1 DF, DAILY([FLUTICASONE FUROATE: 200 MCG, VILANTEROL TRIFENATATE: 25 MCG] ONE PUFF PER DAY)
     Route: 055

REACTIONS (2)
  - Hepatic pain [Unknown]
  - Renal pain [Unknown]
